FAERS Safety Report 6499847-X (Version None)
Quarter: 2009Q4

REPORT INFORMATION
  Report Type: 
  Country: None (occurrence: None)
  Receive Date: 20091214
  Receipt Date: 20091214
  Transmission Date: 20100525
  Serious: Yes (Life-Threatening)
  Sender: FDA-Public Use
  Company Number: None

PATIENT
  Age: 26 Year
  Sex: Female
  Weight: 48.0813 kg

DRUGS (2)
  1. SEROQUEL XR [Suspect]
     Dosage: 50 MG ONCE DAILY PO
     Route: 048
     Dates: start: 20091001, end: 20091001
  2. SEROQUEL XR [Suspect]
     Dosage: 50 MG ONCE DAILY PO
     Route: 048
     Dates: start: 20091005, end: 20091006

REACTIONS (6)
  - DIZZINESS [None]
  - DYSPNOEA [None]
  - PANIC ATTACK [None]
  - PYREXIA [None]
  - VISION BLURRED [None]
  - VISUAL IMPAIRMENT [None]
